FAERS Safety Report 9281237 (Version 3)
Quarter: 2013Q4

REPORT INFORMATION
  Report Type: Spontaneous
  Country: US (occurrence: US)
  Receive Date: 20130509
  Receipt Date: 20131031
  Transmission Date: 20140711
  Serious: Yes (Hospitalization)
  Sender: FDA-Public Use
  Company Number: US-PERRIGO-13US004953

PATIENT
  Age: 59 Year
  Sex: Male
  Weight: 119.27 kg

DRUGS (3)
  1. POLYETHYLENE GLYCOL 3350 RX 17G 7A6 [Suspect]
     Indication: CONSTIPATION
     Dosage: 17 G, QD
     Route: 048
     Dates: start: 20130311, end: 20130318
  2. POLYETHYLENE GLYCOL 3350 RX 17G 7A6 [Suspect]
     Indication: BOWEL MOVEMENT IRREGULARITY
  3. CARDIAC THERAPY [Concomitant]
     Indication: CARDIAC DISORDER
     Dosage: UNK
     Route: 065

REACTIONS (9)
  - Intestinal obstruction [Recovered/Resolved]
  - Dehydration [Recovered/Resolved]
  - Vomiting [Recovered/Resolved]
  - Diarrhoea [Recovered/Resolved]
  - Abdominal pain upper [Recovered/Resolved]
  - Flatulence [Recovered/Resolved]
  - Abdominal distension [Recovered/Resolved]
  - Weight decreased [Recovered/Resolved]
  - Drug ineffective [Unknown]
